FAERS Safety Report 20076545 (Version 1)
Quarter: 2021Q4

REPORT INFORMATION
  Report Type: Spontaneous
  Country: US (occurrence: None)
  Receive Date: 20211115
  Receipt Date: 20211115
  Transmission Date: 20220303
  Serious: Yes (Death)
  Sender: FDA-Public Use
  Company Number: None

PATIENT
  Age: 74 Year
  Sex: Male

DRUGS (4)
  1. KEYTRUDA [Suspect]
     Active Substance: PEMBROLIZUMAB
     Indication: Lung neoplasm malignant
     Dosage: OTHER FREQUENCY : UNKNOWN;?
     Route: 042
     Dates: start: 20210913, end: 20211107
  2. ALIMTA [Concomitant]
     Active Substance: PEMETREXED DISODIUM
  3. CARBOPLATIN [Concomitant]
     Active Substance: CARBOPLATIN
  4. UDENYCA [Concomitant]
     Active Substance: PEGFILGRASTIM-CBQV

REACTIONS (1)
  - Death [None]

NARRATIVE: CASE EVENT DATE: 20211107
